FAERS Safety Report 13786588 (Version 1)
Quarter: 2017Q3

REPORT INFORMATION
  Report Type: Spontaneous
  Country: US (occurrence: US)
  Receive Date: 20170725
  Receipt Date: 20170725
  Transmission Date: 20171127
  Serious: Yes (Death)
  Sender: FDA-Public Use
  Company Number: None

PATIENT
  Age: 67 Year
  Sex: Female
  Weight: 54 kg

DRUGS (3)
  1. ALIMTA [Concomitant]
     Active Substance: PEMETREXED DISODIUM
  2. AVASTIN [Suspect]
     Active Substance: BEVACIZUMAB
     Indication: LUNG NEOPLASM MALIGNANT
     Dosage: OTHER FREQUENCY:EVERY 3 WEEKS; 1000MG INTRAVENOUS (NOT OTHERWISE SPECIFIED) ?
     Route: 042
     Dates: start: 20150817, end: 20170718
  3. FASLODEX [Concomitant]
     Active Substance: FULVESTRANT

REACTIONS (1)
  - Disease progression [None]

NARRATIVE: CASE EVENT DATE: 20170718
